FAERS Safety Report 9265462 (Version 2)
Quarter: 2013Q2

REPORT INFORMATION
  Report Type: Spontaneous
  Country: US (occurrence: US)
  Receive Date: 20130501
  Receipt Date: 20130618
  Transmission Date: 20140414
  Serious: Yes (Other)
  Sender: FDA-Public Use
  Company Number: US-PFIZER INC-2013132303

PATIENT
  Age: 65 Year
  Sex: Female
  Weight: 47.62 kg

DRUGS (5)
  1. CADUET [Suspect]
     Indication: HYPERTENSION
     Dosage: AMLODIPINE BESILATE 10 MG/ATORVASTATIN CALCIUM 40 MG, ONCE A DAY
     Route: 048
     Dates: end: 20130408
  2. CADUET [Suspect]
     Indication: BLOOD CHOLESTEROL INCREASED
  3. ACCUPRIL [Concomitant]
     Dosage: UNK
  4. ASPIRIN [Concomitant]
     Indication: ANTICOAGULANT THERAPY
     Dosage: UNK
  5. BRILINTA [Concomitant]
     Indication: ANTICOAGULANT THERAPY
     Dosage: UNK

REACTIONS (4)
  - Loss of consciousness [Unknown]
  - Coronary artery occlusion [Unknown]
  - Cardiac disorder [Unknown]
  - Heart rate decreased [Unknown]
